FAERS Safety Report 17828296 (Version 1)
Quarter: 2020Q2

REPORT INFORMATION
  Report Type: Spontaneous
  Country: US (occurrence: US)
  Receive Date: 20200527
  Receipt Date: 20200527
  Transmission Date: 20200714
  Serious: No
  Sender: FDA-Public Use
  Company Number: US-SHIRE-US202017139

PATIENT
  Sex: Female

DRUGS (2)
  1. LIALDA [Suspect]
     Active Substance: MESALAMINE
     Dosage: 1.2 GRAM, 2X/DAY:BID
     Route: 065
  2. LIALDA [Suspect]
     Active Substance: MESALAMINE
     Indication: COLITIS ULCERATIVE
     Dosage: 1.2 GRAM, 4X/DAY:QID
     Route: 065

REACTIONS (6)
  - Diarrhoea [Unknown]
  - Gastric disorder [Unknown]
  - Anal incontinence [Unknown]
  - Mucous stools [Unknown]
  - Flatulence [Unknown]
  - Anal inflammation [Unknown]
